FAERS Safety Report 9709078 (Version 1)
Quarter: 2013Q4

REPORT INFORMATION
  Report Type: Report from Study
  Country: US (occurrence: US)
  Receive Date: 20131125
  Receipt Date: 20131125
  Transmission Date: 20140711
  Serious: Yes (Other)
  Sender: FDA-Public Use
  Company Number: US-ABBVIE-13P-163-1171062-00

PATIENT
  Sex: Female

DRUGS (19)
  1. HUMIRA [Suspect]
     Indication: RHEUMATOID ARTHRITIS
  2. PLAQUENIL [Concomitant]
     Indication: PRODUCT USED FOR UNKNOWN INDICATION
  3. OMEPRAZOLE [Concomitant]
     Indication: PRODUCT USED FOR UNKNOWN INDICATION
     Dosage: 40 MG DAILY (20 MG X 2 CAPSULES)
  4. RECLAST [Concomitant]
     Indication: OSTEOPOROSIS
  5. LIPITOR [Concomitant]
     Indication: BLOOD CHOLESTEROL INCREASED
  6. FLONASE [Concomitant]
     Indication: PRODUCT USED FOR UNKNOWN INDICATION
  7. ESTERASE [Concomitant]
     Indication: VULVOVAGINAL DRYNESS
  8. SANCTURA [Concomitant]
     Indication: PRODUCT USED FOR UNKNOWN INDICATION
     Dosage: AT NIGHT
  9. COUMADIN [Concomitant]
     Indication: ANTICOAGULANT THERAPY
     Dosage: 3 TABLETS ON MONDAY, WEDNESDAY, FRIDAY
  10. COUMADIN [Concomitant]
     Dosage: 4 TABLETS ON SUNDAY, TUESDAY, THURSDAY, SATURDAY
  11. NORVASC [Concomitant]
     Indication: HYPERTENSION
  12. POTASSIUM CHLORIDE [Concomitant]
     Indication: PRODUCT USED FOR UNKNOWN INDICATION
     Dosage: 1 TABLESPOON DAILY
  13. LASIX [Concomitant]
     Indication: FLUID RETENTION
  14. LANOXIN [Concomitant]
     Indication: CARDIAC DISORDER
  15. LANOXIN [Concomitant]
     Indication: ATRIAL FIBRILLATION
  16. LOPRESSOR [Concomitant]
     Indication: HYPERTENSION
  17. CALCIUM PLUS VITAMIN D [Concomitant]
     Indication: PRODUCT USED FOR UNKNOWN INDICATION
  18. VITAMIN D [Concomitant]
     Indication: VITAMIN D DECREASED
     Dosage: 500 IU DAILY
  19. VITAMIN D [Concomitant]
     Dosage: 50000 IU DAILY

REACTIONS (2)
  - Rotator cuff syndrome [Recovered/Resolved]
  - Vitamin D decreased [Recovered/Resolved]
